FAERS Safety Report 7511537-0 (Version None)
Quarter: 2011Q2

REPORT INFORMATION
  Report Type: 
  Country: None (occurrence: None)
  Receive Date: 20110531
  Receipt Date: 20110525
  Transmission Date: 20111010
  Serious: Yes (Hospitalization)
  Sender: FDA-Public Use
  Company Number: FR-BRISTOL-MYERS SQUIBB COMPANY-15784556

PATIENT
  Age: 6 Decade
  Sex: Male

DRUGS (3)
  1. REYATAZ [Suspect]
     Dates: end: 20110101
  2. RITONAVIR [Suspect]
  3. ABACAVIR SULFATE AND LAMIVUDINE [Suspect]
     Dosage: 3 OR 4 YEARS

REACTIONS (3)
  - NEPHROLITHIASIS [None]
  - HAEMATURIA [None]
  - HYPERCREATININAEMIA [None]
